FAERS Safety Report 25988813 (Version 1)
Quarter: 2025Q4

REPORT INFORMATION
  Report Type: Spontaneous
  Country: US (occurrence: US)
  Receive Date: 20251103
  Receipt Date: 20251103
  Transmission Date: 20260118
  Serious: No
  Sender: RIGEL PHARMACEUTICALS
  Company Number: US-RIGEL Pharmaceuticals, INC-20250700179

PATIENT
  Sex: Female
  Weight: 51.256 kg

DRUGS (1)
  1. GAVRETO [Suspect]
     Active Substance: PRALSETINIB
     Indication: Lung neoplasm malignant
     Dosage: 400 MG, QD
     Route: 048
     Dates: start: 20250715, end: 20250728

REACTIONS (20)
  - Nervousness [Unknown]
  - Middle insomnia [Unknown]
  - Chills [Unknown]
  - Throat irritation [Unknown]
  - Balance disorder [Unknown]
  - Sleep deficit [Unknown]
  - Dyspepsia [Unknown]
  - Hyperhidrosis [Unknown]
  - Productive cough [Unknown]
  - Dyspnoea [Unknown]
  - Fatigue [Unknown]
  - Nausea [Unknown]
  - Hypertension [Unknown]
  - Dizziness [Unknown]
  - Asthenia [Unknown]
  - Abdominal pain [Not Recovered/Not Resolved]
  - Paraesthesia [Unknown]
  - Decreased appetite [Unknown]
  - Dry mouth [Unknown]
  - White blood cell count decreased [Unknown]

NARRATIVE: CASE EVENT DATE: 20250101
